FAERS Safety Report 6990107-7 (Version None)
Quarter: 2010Q3

REPORT INFORMATION
  Report Type: 
  Country: None (occurrence: None)
  Receive Date: 20100916
  Receipt Date: 20100902
  Transmission Date: 20110219
  Serious: Yes (Death)
  Sender: FDA-Public Use
  Company Number: US-WATSON-2010-12135

PATIENT
  Age: 45 Year
  Sex: Female

DRUGS (2)
  1. BACLOFEN [Suspect]
     Indication: COMPLETED SUICIDE
     Dosage: UNK
  2. DULOXETINE [Suspect]
     Indication: COMPLETED SUICIDE
     Dosage: UNK

REACTIONS (1)
  - DRUG TOXICITY [None]
